FAERS Safety Report 6488793-3 (Version None)
Quarter: 2009Q4

REPORT INFORMATION
  Report Type: 
  Country: None (occurrence: None)
  Receive Date: 20091210
  Receipt Date: 20091208
  Transmission Date: 20100525
  Serious: Yes (Other)
  Sender: FDA-Public Use
  Company Number: AU-PFIZER INC-2009304015

PATIENT
  Age: 55 Year
  Sex: Male

DRUGS (1)
  1. LIPITOR [Suspect]

REACTIONS (4)
  - CARDIAC FLUTTER [None]
  - CHEST PAIN [None]
  - MALAISE [None]
  - PALLOR [None]
